FAERS Safety Report 11510699 (Version 1)
Quarter: 2015Q3

REPORT INFORMATION
  Report Type: Spontaneous
  Country: NZ (occurrence: NZ)
  Receive Date: 20150915
  Receipt Date: 20150915
  Transmission Date: 20151125
  Serious: Yes (Other)
  Sender: FDA-Public Use
  Company Number: NZ-JNJFOC-20150904801

PATIENT
  Age: 53 Year
  Sex: Male

DRUGS (1)
  1. REMICADE [Suspect]
     Active Substance: INFLIXIMAB
     Indication: BEHCET^S SYNDROME
     Dosage: TOTAL 3 DOSES OF INFLIXIMAB
     Route: 042

REACTIONS (4)
  - Cerebrovascular accident [Unknown]
  - Off label use [Unknown]
  - Behcet^s syndrome [Unknown]
  - Drug ineffective for unapproved indication [Unknown]
